FAERS Safety Report 9098848 (Version 2)
Quarter: 2013Q1

REPORT INFORMATION
  Report Type: Spontaneous
  Country: CA (occurrence: CA)
  Receive Date: 20130214
  Receipt Date: 20130311
  Transmission Date: 20140127
  Serious: Yes (Other)
  Sender: FDA-Public Use
  Company Number: CA-AMGEN-CANSP2013009365

PATIENT
  Age: 67 Year
  Sex: Male

DRUGS (2)
  1. ENBREL [Suspect]
     Indication: RHEUMATOID ARTHRITIS
     Dosage: 50 MG, QWK
     Route: 058
     Dates: start: 201212, end: 201301
  2. IMURAN                             /00001501/ [Concomitant]
     Indication: RHEUMATOID ARTHRITIS
     Dosage: 150 UNK, UNK
     Route: 048

REACTIONS (1)
  - Pancreatitis [Recovered/Resolved]
